FAERS Safety Report 8042810-8 (Version None)
Quarter: 2012Q1

REPORT INFORMATION
  Report Type: 
  Country: None (occurrence: None)
  Receive Date: 20120112
  Receipt Date: 20120109
  Transmission Date: 20120608
  Serious: Yes (Life-Threatening, Other)
  Sender: FDA-Public Use
  Company Number: US-BAYER-2011-018998

PATIENT
  Sex: Female
  Weight: 72.562 kg

DRUGS (2)
  1. YAZ [Suspect]
     Indication: CYST
  2. YAZ [Suspect]
     Indication: MENSTRUATION IRREGULAR
     Dosage: UNK
     Route: 048
     Dates: start: 20071101, end: 20090701

REACTIONS (6)
  - GALLBLADDER DISORDER [None]
  - ORGAN FAILURE [None]
  - INJURY [None]
  - PAIN [None]
  - GALLBLADDER NON-FUNCTIONING [None]
  - ANXIETY [None]
